FAERS Safety Report 19098125 (Version 1)
Quarter: 2021Q2

REPORT INFORMATION
  Report Type: Spontaneous
  Country: CO (occurrence: CO)
  Receive Date: 20210406
  Receipt Date: 20210406
  Transmission Date: 20210717
  Serious: Yes (Life-Threatening, Hospitalization, Other)
  Sender: FDA-Public Use
  Company Number: CO-ACCORD-221158

PATIENT
  Age: 47 Year
  Sex: Male

DRUGS (14)
  1. MYCOPHENOLATE MOFETIL/MYCOPHENOLATE SODIUM/MYCOPHENOLIC ACID [Suspect]
     Active Substance: MYCOPHENOLIC ACID
     Indication: IMMUNOSUPPRESSANT DRUG THERAPY
     Dosage: 6 DAYS, DOSE REDUCED
  2. VALGANCICLOVIR/VALGANCICLOVIR HYDROCHLORIDE [Concomitant]
     Active Substance: VALGANCICLOVIR
     Indication: PROPHYLAXIS
  3. PREDNISOLONE. [Suspect]
     Active Substance: PREDNISOLONE
     Indication: IMMUNOSUPPRESSANT DRUG THERAPY
  4. NYSTATIN/NYSTATIN/LIPOSOME [Concomitant]
     Active Substance: NYSTATIN
     Indication: PROPHYLAXIS
  5. WARFARIN [Concomitant]
     Active Substance: WARFARIN
     Indication: PULMONARY EMBOLISM
  6. HYDROXYCHLOROQUINE [Interacting]
     Active Substance: HYDROXYCHLOROQUINE
     Indication: COVID-19 PNEUMONIA
     Dosage: 400 MG, 12 HRS FOR 1 DAYS
  7. HYDROXYCHLOROQUINE [Suspect]
     Active Substance: HYDROXYCHLOROQUINE
     Indication: COVID-19 PNEUMONIA
     Dosage: 400 MG, 12 HRS FOR 1 DAYS
     Route: 048
  8. CARVEDILOL/CARVEDILOL HYDROCHLODRIDE [Concomitant]
     Active Substance: CARVEDILOL HYDROCHLORIDE
     Indication: HYPERTENSION
  9. SULFAMETHOXAZOLE/TRIMETHOPRIM [Concomitant]
     Active Substance: SULFAMETHOXAZOLE\TRIMETHOPRIM
     Indication: PROPHYLAXIS
  10. TACROLIMUS. [Interacting]
     Active Substance: TACROLIMUS
     Indication: IMMUNOSUPPRESSANT DRUG THERAPY
  11. TACROLIMUS. [Interacting]
     Active Substance: TACROLIMUS
     Indication: IMMUNOSUPPRESSANT DRUG THERAPY
  12. BASILIXIMAB [Suspect]
     Active Substance: BASILIXIMAB
     Indication: IMMUNOSUPPRESSANT DRUG THERAPY
  13. MYCOPHENOLIC ACID. [Suspect]
     Active Substance: MYCOPHENOLIC ACID
     Indication: IMMUNOSUPPRESSANT DRUG THERAPY
     Dosage: DOSE REDUCED
  14. LOPINAVIR/RITONAVIR [Interacting]
     Active Substance: LOPINAVIR\RITONAVIR
     Indication: COVID-19 PNEUMONIA
     Dosage: STRENGTH: 400 MG / 100 MG

REACTIONS (4)
  - Immunosuppressant drug level increased [Recovering/Resolving]
  - Drug interaction [Unknown]
  - COVID-19 pneumonia [Recovered/Resolved]
  - Diarrhoea [Unknown]
